FAERS Safety Report 9382331 (Version 2)
Quarter: 2014Q1

REPORT INFORMATION
  Report Type: Report from Study
  Country: US (occurrence: US)
  Receive Date: 20130703
  Receipt Date: 20140220
  Transmission Date: 20141002
  Serious: Yes (Hospitalization)
  Sender: FDA-Public Use
  Company Number: US-PFIZER INC-2013193110

PATIENT
  Age: 72 Year
  Sex: Male
  Weight: 89.5 kg

DRUGS (7)
  1. DOXORUBICIN HCL [Suspect]
     Indication: SARCOMA METASTATIC
     Dosage: CYCLIC; SOLUTION FOR INFUSION
     Dates: start: 20121005
  2. DOXORUBICIN HCL [Suspect]
     Dosage: 60 MG/M2, / 127.2 MG / BOLUS / CYCLE #4; SOLUTION FOR INFUSION
     Route: 040
     Dates: start: 20121226, end: 20121226
  3. VALACYCLOVIR HYDROCHLORIDE [Concomitant]
     Dosage: UNK
     Dates: start: 20120115
  4. ALENDRONATE [Concomitant]
     Dosage: UNK
     Dates: start: 20120619
  5. DOXAZOSIN [Concomitant]
     Dosage: UNK
     Dates: start: 20120619
  6. VALSARTAN [Concomitant]
     Dosage: UNK
     Dates: start: 20120619
  7. GLIMEPIRIDE [Concomitant]
     Dosage: UNK
     Dates: start: 20080305

REACTIONS (1)
  - Herpes zoster [Recovered/Resolved]
